FAERS Safety Report 6566271-0 (Version None)
Quarter: 2010Q1

REPORT INFORMATION
  Report Type: 
  Country: None (occurrence: None)
  Receive Date: 20100127
  Receipt Date: 20100115
  Transmission Date: 20100710
  Serious: Yes (Other)
  Sender: FDA-Public Use
  Company Number: 235690J09USA

PATIENT
  Age: 61 Year
  Sex: Male

DRUGS (3)
  1. REBIF [Suspect]
     Indication: MULTIPLE SCLEROSIS
     Dosage: SUBCUTANEOUS; 44 MCG, 1 IN 2 DAYS, SUBCUTANEOUS; 44 MCG, 1 IN 3 DAYS, SUBCUTANEOUS
     Route: 058
     Dates: start: 20091113, end: 20090101
  2. REBIF [Suspect]
     Indication: MULTIPLE SCLEROSIS
     Dosage: SUBCUTANEOUS; 44 MCG, 1 IN 2 DAYS, SUBCUTANEOUS; 44 MCG, 1 IN 3 DAYS, SUBCUTANEOUS
     Route: 058
     Dates: start: 20091201, end: 20091201
  3. REBIF [Suspect]
     Indication: MULTIPLE SCLEROSIS
     Dosage: SUBCUTANEOUS; 44 MCG, 1 IN 2 DAYS, SUBCUTANEOUS; 44 MCG, 1 IN 3 DAYS, SUBCUTANEOUS
     Route: 058
     Dates: start: 20091201, end: 20100113

REACTIONS (12)
  - ABDOMINAL PAIN UPPER [None]
  - ASTHENIA [None]
  - CHEST DISCOMFORT [None]
  - CHILLS [None]
  - DIARRHOEA [None]
  - DIZZINESS [None]
  - DYSPHONIA [None]
  - FATIGUE [None]
  - LYMPHADENOPATHY [None]
  - RENAL IMPAIRMENT [None]
  - RENAL MASS [None]
  - URINARY TRACT INFECTION [None]
